FAERS Safety Report 4676677-2 (Version None)
Quarter: 2005Q2

REPORT INFORMATION
  Report Type: 
  Country: None (occurrence: None)
  Receive Date: 20050527
  Receipt Date: 20050429
  Transmission Date: 20051028
  Serious: Yes (Disabling)
  Sender: FDA-Public Use
  Company Number: 2005UW07772

PATIENT
  Sex: Female

DRUGS (12)
  1. ZOMIG [Suspect]
     Route: 048
     Dates: start: 20050515
  2. CALCITE [Concomitant]
     Dates: start: 20050503
  3. PANTOPRAZOLE SODIUM [Concomitant]
     Dates: start: 20050503
  4. TAMOXIFEN [Concomitant]
     Indication: BREAST CANCER
     Route: 048
     Dates: start: 20050501
  5. NORTRIPTYLINE HCL [Concomitant]
     Indication: MIGRAINE
     Dates: start: 20050428
  6. INDAPAMIDE [Concomitant]
     Dates: start: 20050427
  7. ATENOLOL [Concomitant]
     Dates: start: 20050427
  8. K-DUR 10 [Concomitant]
     Dates: start: 20050427
  9. PRAVASTATIN [Concomitant]
  10. DAMYLIN WITH CODEINE [Concomitant]
  11. TEQUIN [Concomitant]
     Dates: start: 20050408
  12. ACETAMINOPHEN W/ CODEINE [Concomitant]

REACTIONS (2)
  - COUGH [None]
  - DRY THROAT [None]
